FAERS Safety Report 7356788-3 (Version None)
Quarter: 2011Q1

REPORT INFORMATION
  Report Type: 
  Country: None (occurrence: None)
  Receive Date: 20110316
  Receipt Date: 20110310
  Transmission Date: 20110831
  Serious: Yes (Hospitalization)
  Sender: FDA-Public Use
  Company Number: US-BRISTOL-MYERS SQUIBB COMPANY-15509136

PATIENT
  Age: 38 Year
  Sex: Female
  Weight: 73 kg

DRUGS (29)
  1. ESOMEPRAZOLE MAGNESIUM [Concomitant]
     Dosage: CAPSULE,DELAYED RELEASE CAPSULE.
     Route: 048
     Dates: start: 20100923
  2. CARAFATE [Concomitant]
     Dosage: SUSPENSION
     Dates: start: 20101228
  3. ONDANSETRON HCL [Concomitant]
     Dosage: TAB
     Dates: start: 20100831
  4. TRAMADOL HCL [Concomitant]
     Indication: PAIN
     Dosage: TABLET SOLUBLE,1 DF= 2 TABS
     Dates: start: 20110111
  5. ATENOLOL [Concomitant]
     Dosage: ATENOLOL TAB, 1 DF= 1 TAB OF 50MG
     Route: 048
  6. ACETAMINOPHEN W/ CODEINE [Concomitant]
     Dosage: TABLET
     Dates: start: 20100831
  7. DIPHENHYDRAMINE HCL [Concomitant]
     Dosage: 11JAN2011(SOLUTION)
     Dates: start: 20101221
  8. EMLA [Concomitant]
     Dosage: CREAM
     Dates: start: 20100928
  9. VICOPROFEN [Concomitant]
     Dosage: TAB
     Dates: start: 20101228
  10. TYLENOL W/ CODEINE NO. 3 [Concomitant]
     Dosage: EVERY 4 TO 6 HOUR
  11. ATIVAN [Concomitant]
     Dosage: TAB
     Dates: start: 20101019
  12. PROMETHAZINE HCL [Concomitant]
     Dosage: SUPPOSITORY
     Dates: start: 20101019
  13. RANITIDINE HCL [Concomitant]
     Dosage: 11JAN2011,SOLUTION
     Dates: start: 20101221
  14. LISINOPRIL [Concomitant]
     Dosage: TABLET
     Route: 048
  15. ALLEGRA D 24 HOUR [Concomitant]
     Dosage: ALLEGRA-D 24 HOUR
     Dates: start: 20101019
  16. PALONOSETRON [Concomitant]
     Dosage: 19OCT2010,PALONOSETRON HCL(SOLUTION).
     Dates: start: 20100928
  17. ULTRAM [Concomitant]
     Indication: PAIN
     Dosage: EVERY 4 TO 6 HR
     Route: 048
  18. METFORMIN HCL [Concomitant]
     Dosage: TABLET
     Route: 048
  19. PROCHLORPERAZINE MALEATE [Concomitant]
     Dosage: TABLET
     Dates: start: 20100831
  20. DOXORUBICIN HCL [Suspect]
     Indication: BREAST CANCER
     Dosage: CYCLE 6,DAY10,SOLUTION,INTERRUPTED + LAST  ON 01DEC2010.
     Dates: start: 20100928
  21. VERAPAMIL HCL [Concomitant]
     Dosage: TABLET
     Route: 048
  22. AMBIEN [Concomitant]
     Dosage: TAB
     Dates: start: 20101228
  23. APREPITANT [Concomitant]
     Dosage: TAB
     Dates: start: 20100928
  24. DEXAMETHASONE SODIUM PHOSPHATE [Concomitant]
     Dosage: SOLUTION,01DEC2010
     Dates: start: 20100928
  25. EMEND [Concomitant]
     Dosage: MISCELLANEOUS,EMEND TRI FOLD
     Dates: start: 20100831
  26. IXEMPRA KIT [Suspect]
     Indication: BREAST CANCER
     Dosage: SOLUTION  21DEC2010-11JAN2011:72MG(INTERRUPTED ON 11JAN2011)
     Route: 042
     Dates: start: 20101221, end: 20110217
  27. CYCLOPHOSPHAMIDE [Suspect]
     Indication: BREAST CANCER
     Dosage: INTERRUPTED ON 01DEC2010.SOLUTION
     Dates: start: 20100928
  28. AMOXICILLIN [Concomitant]
     Dosage: AMOXICILLIN TABS
     Route: 048
     Dates: start: 20101124
  29. METOCLOPRAMIDE HCL [Concomitant]
     Dosage: BED TIME,
     Route: 048
     Dates: start: 20101019

REACTIONS (5)
  - DEHYDRATION [None]
  - FEBRILE NEUTROPENIA [None]
  - FANCONI SYNDROME [None]
  - ANAEMIA [None]
  - HAEMOLYTIC ANAEMIA [None]
